FAERS Safety Report 6731373-2 (Version None)
Quarter: 2010Q2

REPORT INFORMATION
  Report Type: 
  Country: None (occurrence: None)
  Receive Date: 20100518
  Receipt Date: 20100518
  Transmission Date: 20101027
  Serious: Yes (Other)
  Sender: FDA-Public Use
  Company Number: None

PATIENT
  Age: 70 Year
  Sex: Female
  Weight: 52.1637 kg

DRUGS (3)
  1. ZOCOR [Suspect]
     Indication: HYPERTENSION
     Dosage: 1 QD
     Dates: start: 20090824, end: 20090918
  2. COREG CR [Suspect]
     Indication: HYPERLIPIDAEMIA
  3. TOPROL-XL [Suspect]

REACTIONS (3)
  - BLOOD PRESSURE INADEQUATELY CONTROLLED [None]
  - FATIGUE [None]
  - MUSCLE SPASMS [None]
